FAERS Safety Report 4759347-1 (Version None)
Quarter: 2005Q3

REPORT INFORMATION
  Report Type: 
  Country: None (occurrence: None)
  Receive Date: 20050831
  Receipt Date: 20050815
  Transmission Date: 20060218
  Serious: Yes (Hospitalization, Other)
  Sender: FDA-Public Use
  Company Number: USA0507103815

PATIENT
  Age: 88 Year
  Sex: Female

DRUGS (10)
  1. FORTEO [Suspect]
     Indication: OSTEOPOROSIS
     Dates: start: 20050201
  2. LISINOPRIL AND HYDROCHLOROTHIAZIDE [Concomitant]
  3. METOPROLOL [Concomitant]
  4. MOBIC [Concomitant]
  5. PRAVACHOL [Concomitant]
  6. DETROL LA [Concomitant]
  7. ASPIRIN [Concomitant]
  8. CALCIUM CITRATE WIT VITAMIN D [Concomitant]
  9. MULTI-VITAMIN [Concomitant]
  10. ASCORBIC ACID [Concomitant]

REACTIONS (8)
  - CHEST PAIN [None]
  - FALL [None]
  - IMPAIRED HEALING [None]
  - INSOMNIA [None]
  - LUNG NEOPLASM [None]
  - PAIN [None]
  - PHARMACEUTICAL PRODUCT COMPLAINT [None]
  - WRIST FRACTURE [None]
